FAERS Safety Report 7238553-0 (Version None)
Quarter: 2011Q1

REPORT INFORMATION
  Report Type: 
  Country: None (occurrence: None)
  Receive Date: 20110121
  Receipt Date: 20110112
  Transmission Date: 20110831
  Serious: Yes (Hospitalization)
  Sender: FDA-Public Use
  Company Number: US-CEPHALON-2011000202

PATIENT
  Age: 48 Year
  Sex: Male

DRUGS (1)
  1. ACTIQ [Suspect]
     Route: 002
     Dates: start: 20101024

REACTIONS (4)
  - SOMNOLENCE [None]
  - TACHYCARDIA [None]
  - INTENTIONAL DRUG MISUSE [None]
  - DRUG DIVERSION [None]
